FAERS Safety Report 26037082 (Version 1)
Quarter: 2025Q4

REPORT INFORMATION
  Report Type: Spontaneous
  Country: EU (occurrence: EU)
  Receive Date: 20251112
  Receipt Date: 20251112
  Transmission Date: 20260117
  Serious: Yes (Hospitalization)
  Sender: PFIZER
  Company Number: None

PATIENT
  Age: 78 Year
  Sex: Male

DRUGS (2)
  1. UNASYN [Suspect]
     Active Substance: AMPICILLIN SODIUM\SULBACTAM SODIUM
     Indication: Infection
     Dosage: FREQ:24 H;3 G DIE
     Route: 042
     Dates: start: 20240205, end: 20240216
  2. CEFIDEROCOL SULFATE TOSYLATE [Suspect]
     Active Substance: CEFIDEROCOL SULFATE TOSYLATE
     Indication: Infection
     Dosage: FREQ:24 H;3G DIE
     Route: 042
     Dates: start: 20240205, end: 20240216

REACTIONS (1)
  - Dysentery [Recovering/Resolving]

NARRATIVE: CASE EVENT DATE: 20240205
